FAERS Safety Report 15343191 (Version 1)
Quarter: 2018Q3

REPORT INFORMATION
  Report Type: Spontaneous
  Country: IN (occurrence: IN)
  Receive Date: 20180903
  Receipt Date: 20180903
  Transmission Date: 20181010
  Serious: Yes (Life-Threatening, Other)
  Sender: FDA-Public Use
  Company Number: IN-ASTELLAS-2018US038876

PATIENT
  Age: 2 Year
  Sex: Male
  Weight: 13 kg

DRUGS (1)
  1. AMPHOTERICIN B, LIPOSOME [Suspect]
     Active Substance: AMPHOTERICIN B
     Indication: ANTIFUNGAL PROPHYLAXIS
     Route: 042
     Dates: start: 20180727, end: 20180727

REACTIONS (5)
  - Bronchospasm [Recovered/Resolved with Sequelae]
  - Stem cell transplant [Unknown]
  - Off label use [Recovered/Resolved]
  - Urticaria [Recovered/Resolved with Sequelae]
  - Lip oedema [Recovered/Resolved with Sequelae]

NARRATIVE: CASE EVENT DATE: 20180727
